FAERS Safety Report 16687367 (Version 1)
Quarter: 2019Q3

REPORT INFORMATION
  Report Type: Spontaneous
  Country: US (occurrence: US)
  Receive Date: 20190809
  Receipt Date: 20190809
  Transmission Date: 20191004
  Serious: Yes (Other)
  Sender: FDA-Public Use
  Company Number: US-TARO-2018TAR00830

PATIENT

DRUGS (2)
  1. WARFARIN SODIUM TABLETS USP 4MG [Suspect]
     Active Substance: WARFARIN SODIUM
     Dosage: UNK
  2. WARFARIN SODIUM TABLETS USP 3MG [Suspect]
     Active Substance: WARFARIN SODIUM
     Dosage: UNK

REACTIONS (2)
  - International normalised ratio increased [Unknown]
  - Product quality issue [Not Recovered/Not Resolved]
